FAERS Safety Report 15751003 (Version 1)
Quarter: 2018Q4

REPORT INFORMATION
  Report Type: Spontaneous
  Country: US (occurrence: US)
  Receive Date: 20181221
  Receipt Date: 20181221
  Transmission Date: 20190205
  Serious: No
  Sender: FDA-Public Use
  Company Number: US-THERAPEUTICSMD-2018TMD00365

PATIENT
  Sex: Female
  Weight: 60.77 kg

DRUGS (12)
  1. DICLOFENAC [Concomitant]
     Active Substance: DICLOFENAC
  2. MAGNESIUM [Concomitant]
     Active Substance: MAGNESIUM
  3. TRAZODONE [Concomitant]
     Active Substance: TRAZODONE HYDROCHLORIDE
  4. VITAMIN D [Concomitant]
     Active Substance: CHOLECALCIFEROL
  5. MELOXICAM. [Concomitant]
     Active Substance: MELOXICAM
  6. CALCIUM [Concomitant]
     Active Substance: CALCIUM
  7. RESTORIL [Concomitant]
     Active Substance: TEMAZEPAM
  8. AMITRIPTYLINE [Concomitant]
     Active Substance: AMITRIPTYLINE
  9. PROBIOTIC [Concomitant]
     Active Substance: PROBIOTICS NOS
  10. IMVEXXY [Suspect]
     Active Substance: ESTRADIOL
     Dosage: UNK
     Dates: start: 201810
  11. ESTRADIOL/TESTOSTERONE CREAM [Concomitant]
  12. GLUCOSAMINE [Concomitant]
     Active Substance: GLUCOSAMINE

REACTIONS (2)
  - Pruritus [Unknown]
  - Burning sensation [Unknown]

NARRATIVE: CASE EVENT DATE: 2018
